FAERS Safety Report 11203132 (Version 1)
Quarter: 2015Q2

REPORT INFORMATION
  Report Type: Spontaneous
  Country: GB (occurrence: GB)
  Receive Date: 20150619
  Receipt Date: 20150619
  Transmission Date: 20150821
  Serious: Yes (Other)
  Sender: FDA-Public Use
  Company Number: GB-UCBSA-2015019744

PATIENT
  Age: 53 Year
  Sex: Female
  Weight: 82.56 kg

DRUGS (5)
  1. KEPPRA [Suspect]
     Active Substance: LEVETIRACETAM
     Indication: NERVE INJURY
     Dosage: DOSE: 1000 MG, DOSAGES: 2/
  2. COCODAMOL [Concomitant]
     Active Substance: ACETAMINOPHEN\CODEINE PHOSPHATE
     Indication: MUSCLE SPASMS
  3. KEPPRA [Suspect]
     Active Substance: LEVETIRACETAM
     Indication: OFF LABEL USE
  4. FRISIUM [Suspect]
     Active Substance: CLOBAZAM
     Indication: NERVE INJURY
     Dosage: DOSE:10 MG, DOSAGES: 2/
  5. COCODAMOL [Concomitant]
     Active Substance: ACETAMINOPHEN\CODEINE PHOSPHATE
     Indication: HEADACHE

REACTIONS (16)
  - Lip dry [Not Recovered/Not Resolved]
  - Peripheral swelling [Not Recovered/Not Resolved]
  - Pollakiuria [Not Recovered/Not Resolved]
  - Decreased appetite [Not Recovered/Not Resolved]
  - Dry throat [Not Recovered/Not Resolved]
  - Headache [Not Recovered/Not Resolved]
  - Paraesthesia [Not Recovered/Not Resolved]
  - Aggression [Not Recovered/Not Resolved]
  - Back pain [Not Recovered/Not Resolved]
  - Lethargy [Not Recovered/Not Resolved]
  - Off label use [Unknown]
  - Dry mouth [Not Recovered/Not Resolved]
  - Rash [Not Recovered/Not Resolved]
  - Muscle spasms [Not Recovered/Not Resolved]
  - Paraesthesia oral [Not Recovered/Not Resolved]
  - Skin exfoliation [Not Recovered/Not Resolved]
